FAERS Safety Report 15134243 (Version 1)
Quarter: 2018Q3

REPORT INFORMATION
  Report Type: Spontaneous
  Country: None (occurrence: US)
  Receive Date: 20180712
  Receipt Date: 20180712
  Transmission Date: 20181010
  Serious: Yes (Other)
  Sender: FDA-Public Use
  Company Number: US-DUCHESNAY INC.-2051858

PATIENT
  Age: 68 Year
  Sex: Female

DRUGS (2)
  1. UNSPECIFIED MEDICATION FOR UNDERACTIVE THYROID [Concomitant]
  2. OSPHENA [Suspect]
     Active Substance: OSPEMIFENE
     Indication: VULVOVAGINAL DRYNESS
     Route: 048
     Dates: start: 2017

REACTIONS (2)
  - Product use in unapproved indication [Recovering/Resolving]
  - Postmenopausal haemorrhage [Recovering/Resolving]

NARRATIVE: CASE EVENT DATE: 20180613
